FAERS Safety Report 16007363 (Version 1)
Quarter: 2019Q1

REPORT INFORMATION
  Report Type: Spontaneous
  Country: DE (occurrence: DE)
  Receive Date: 20190226
  Receipt Date: 20190226
  Transmission Date: 20190418
  Serious: Yes (Other)
  Sender: FDA-Public Use
  Company Number: DE-BAUSCH-BL-2019-005541

PATIENT
  Age: 79 Year
  Sex: Female

DRUGS (5)
  1. DORZOLAMIDE/TIMOLOL [Concomitant]
     Active Substance: DORZOLAMIDE\TIMOLOL
     Indication: INTRAOCULAR PRESSURE TEST ABNORMAL
     Dosage: UNK
     Route: 047
  2. OFLOXACIN. [Suspect]
     Active Substance: OFLOXACIN
     Indication: POSTOPERATIVE CARE
     Route: 047
  3. CICLOSPORIN A [Concomitant]
     Active Substance: CYCLOSPORINE
     Indication: POSTOPERATIVE CARE
  4. DEXAMETHASONE DIHYDROGEN PHOSPHATE DISODIUM [Concomitant]
     Indication: POSTOPERATIVE CARE
  5. HUMAN ALBUMIN [Concomitant]
     Active Substance: ALBUMIN HUMAN
     Indication: POSTOPERATIVE CARE
     Dosage: UNK
     Route: 047

REACTIONS (4)
  - Corneal erosion [Unknown]
  - Impaired healing [Unknown]
  - Keratolysis exfoliativa acquired [Unknown]
  - Corneal perforation [Unknown]
